FAERS Safety Report 8352641-7 (Version None)
Quarter: 2012Q2

REPORT INFORMATION
  Report Type: 
  Country: None (occurrence: None)
  Receive Date: 20120511
  Receipt Date: 20120503
  Transmission Date: 20120825
  Serious: Yes (Death)
  Sender: FDA-Public Use
  Company Number: US-GENZYME-POMP-1002205

PATIENT
  Sex: Female
  Weight: 73 kg

DRUGS (1)
  1. LUMIZYME [Suspect]
     Indication: GLYCOGEN STORAGE DISEASE TYPE II
     Dosage: 1200 MG, Q2W
     Route: 042
     Dates: start: 20101001, end: 20120420

REACTIONS (1)
  - RESPIRATORY FAILURE [None]
